FAERS Safety Report 8872008 (Version 1)
Quarter: 2012Q4

REPORT INFORMATION
  Report Type: 
  Country: US (occurrence: US)
  Receive Date: 20121029
  Receipt Date: 20121029
  Transmission Date: 20130627
  Serious: Yes (Life-Threatening, Hospitalization)
  Sender: FDA-Public Use
  Company Number: US-JNJFOC-20121012715

PATIENT
  Age: 83 Year
  Sex: Male
  Weight: 92 kg

DRUGS (20)
  1. XARELTO [Suspect]
     Indication: CEREBROVASCULAR ACCIDENT PROPHYLAXIS
     Route: 048
  2. XARELTO [Suspect]
     Indication: ATRIAL FIBRILLATION
     Route: 048
  3. PRILOSEC [Concomitant]
  4. NIASPAN [Concomitant]
  5. LIPITOR [Concomitant]
  6. SYNTHROID [Concomitant]
  7. COREG [Concomitant]
  8. ATACAND [Concomitant]
  9. NEURONTIN [Concomitant]
  10. EPLERENONE [Concomitant]
  11. SYSTANE [Concomitant]
     Indication: DRY EYE
     Dosage: 1 gtt both eyes prn Q12 h
  12. ACETAMINOPHEN [Concomitant]
  13. CHOLECALCIFEROL [Concomitant]
     Dosage: 2000 units
  14. CALCIUM CITRATE + VITAMIN D [Concomitant]
     Dosage: 250/200 units
  15. FISH OIL [Concomitant]
  16. GLUCOSAMINE / CHONDROITIN [Concomitant]
  17. COENZYME 10 [Concomitant]
  18. FERROUS SULFATE [Concomitant]
  19. MULTIPLE VITAMINS [Concomitant]
  20. CHLORHEXIDINE MOUTHWASH [Concomitant]

REACTIONS (1)
  - Upper gastrointestinal haemorrhage [Recovering/Resolving]
